FAERS Safety Report 4367478-3 (Version None)
Quarter: 2004Q2

REPORT INFORMATION
  Report Type: 
  Country: None (occurrence: None)
  Receive Date: 20040601
  Receipt Date: 20040310
  Transmission Date: 20050107
  Serious: Yes (Other)
  Sender: FDA-Public Use
  Company Number: AR-BRISTOL-MYERS SQUIBB COMPANY-12529954

PATIENT
  Age: 67 Year
  Sex: Female

DRUGS (7)
  1. BLINDED: ABATACEPT [Concomitant]
     Indication: RHEUMATOID ARTHRITIS
     Route: 042
     Dates: start: 20030409
  2. BLINDED: PLACEBO [Suspect]
     Indication: RHEUMATOID ARTHRITIS
     Route: 042
     Dates: start: 20030409
  3. METHOTREXATE [Suspect]
     Route: 048
     Dates: start: 20020626
  4. PREDNISONE [Concomitant]
     Dates: start: 20021024
  5. ROFECOXIB [Concomitant]
     Dates: start: 20020626
  6. FOLIC ACID [Concomitant]
     Dates: start: 20020626
  7. FUROSEMIDE [Concomitant]
     Dates: start: 20020626

REACTIONS (1)
  - BASAL CELL CARCINOMA [None]
